FAERS Safety Report 13339191 (Version 1)
Quarter: 2017Q1

REPORT INFORMATION
  Report Type: Spontaneous
  Country: US (occurrence: US)
  Receive Date: 20170315
  Receipt Date: 20170315
  Transmission Date: 20170428
  Serious: No
  Sender: FDA-Public Use
  Company Number: US-TEVA-740506USA

PATIENT
  Sex: Male

DRUGS (1)
  1. PROAIR HFA [Suspect]
     Active Substance: ALBUTEROL SULFATE

REACTIONS (5)
  - Fear [Unknown]
  - Medication residue present [Unknown]
  - Drug ineffective [Unknown]
  - Product odour abnormal [Unknown]
  - Product cleaning inadequate [Unknown]
